FAERS Safety Report 6674656-7 (Version None)
Quarter: 2010Q2

REPORT INFORMATION
  Report Type: 
  Country: None (occurrence: None)
  Receive Date: 20100409
  Receipt Date: 20100406
  Transmission Date: 20101027
  Serious: Yes (Other)
  Sender: FDA-Public Use
  Company Number: JP-ASTRAZENECA-2010SE14883

PATIENT
  Age: 31 Year
  Sex: Male

DRUGS (1)
  1. DIPRIVAN [Suspect]
     Route: 042
     Dates: start: 20071101, end: 20071101

REACTIONS (2)
  - HYPERTHERMIA MALIGNANT [None]
  - RHABDOMYOLYSIS [None]
